FAERS Safety Report 8481511-9 (Version None)
Quarter: 2012Q3

REPORT INFORMATION
  Report Type: 
  Country: None (occurrence: None)
  Receive Date: 20120702
  Receipt Date: 20120620
  Transmission Date: 20120928
  Serious: Yes (Other)
  Sender: FDA-Public Use
  Company Number: JP-VERTEX PHARMACEUTICALS INC.-AE-2012-004507

PATIENT
  Age: 61 Year
  Sex: Female

DRUGS (8)
  1. URSO 250 [Concomitant]
     Route: 048
     Dates: end: 20120117
  2. TELAVIC (TELAPREVIR) [Suspect]
     Indication: HEPATITIS C
     Route: 048
     Dates: start: 20111221, end: 20111226
  3. TELAVIC (TELAPREVIR) [Suspect]
     Route: 048
     Dates: start: 20111226, end: 20120227
  4. TELAVIC (TELAPREVIR) [Suspect]
     Route: 048
     Dates: start: 20120228
  5. REBETOL [Concomitant]
     Indication: HEPATITIS C
     Route: 048
     Dates: start: 20111213, end: 20120117
  6. ZOLPIDEM [Concomitant]
     Route: 048
  7. PEG-INTRON [Concomitant]
     Indication: HEPATITIS C
     Route: 058
     Dates: start: 20111213
  8. REBETOL [Concomitant]
     Route: 048
     Dates: start: 20120117

REACTIONS (1)
  - WHITE BLOOD CELL COUNT DECREASED [None]
